FAERS Safety Report 6645801-4 (Version None)
Quarter: 2010Q1

REPORT INFORMATION
  Report Type: 
  Country: None (occurrence: None)
  Receive Date: 20100323
  Receipt Date: 20100317
  Transmission Date: 20100710
  Serious: Yes (Death, Hospitalization)
  Sender: FDA-Public Use
  Company Number: US-ELI_LILLY_AND_COMPANY-US201003004778

PATIENT
  Sex: Male

DRUGS (10)
  1. HUMALOG [Suspect]
     Indication: DIABETES MELLITUS
     Dosage: 60 U, EACH MORNING
     Dates: start: 20040101, end: 20090101
  2. HUMALOG [Suspect]
     Dosage: 44 U, EACH EVENING
     Dates: start: 20040101, end: 20090101
  3. HUMULIN 70/30 [Suspect]
     Indication: DIABETES MELLITUS
     Dosage: 78 U, EACH MORNING
     Dates: start: 20090101
  4. HUMULIN 70/30 [Suspect]
     Dosage: 78 U, EACH MORNING
     Dates: start: 20090101
  5. HUMULIN 70/30 [Suspect]
     Dosage: 78 U, EACH MORNING
     Dates: start: 20090101
  6. HUMULIN 70/30 [Suspect]
     Dosage: 78 U, EACH MORNING
     Dates: start: 20090101
  7. HUMULIN 70/30 [Suspect]
     Dosage: 58 U, EACH EVENING
     Dates: start: 20090101
  8. HUMULIN 70/30 [Suspect]
     Dosage: 58 U, EACH EVENING
     Dates: start: 20090101
  9. HUMULIN 70/30 [Suspect]
     Dosage: 58 U, EACH EVENING
     Dates: start: 20090101
  10. HUMULIN 70/30 [Suspect]
     Dosage: 58 U, EACH EVENING
     Dates: start: 20090101

REACTIONS (4)
  - APPARENT DEATH [None]
  - ASTHENIA [None]
  - INCORRECT PRODUCT STORAGE [None]
  - INTESTINAL PERFORATION [None]
